FAERS Safety Report 10009033 (Version 1)
Quarter: 2014Q1

REPORT INFORMATION
  Report Type: Spontaneous
  Country: US (occurrence: None)
  Receive Date: 20140228
  Receipt Date: 20140228
  Transmission Date: 20141002
  Serious: Yes (Other)
  Sender: FDA-Public Use
  Company Number: 225313

PATIENT
  Age: 54 Year
  Sex: Female

DRUGS (4)
  1. PICATO GEL [Suspect]
     Indication: ACTINIC KERATOSIS
     Dosage: 1 D, DERMAL
     Dates: start: 20131226, end: 20131226
  2. LIPITOR (ATORVASTATIN CALCIUM) [Concomitant]
  3. NOVALOG/ LANTIS (INSULIN ASPART) [Concomitant]
  4. CELEBREX (CELECOXIB) [Concomitant]

REACTIONS (2)
  - Application site discomfort [None]
  - Application site erythema [None]
